FAERS Safety Report 25549970 (Version 1)
Quarter: 2025Q3

REPORT INFORMATION
  Report Type: Spontaneous
  Country: US (occurrence: US)
  Receive Date: 20250714
  Receipt Date: 20250714
  Transmission Date: 20251021
  Serious: No
  Sender: NOVO NORDISK
  Company Number: US-NOVOPROD-1387173

PATIENT
  Sex: Female
  Weight: 80.73 kg

DRUGS (5)
  1. WEGOVY [Concomitant]
     Active Substance: SEMAGLUTIDE
     Indication: Weight control
     Route: 058
     Dates: start: 20250303
  2. WEGOVY [Concomitant]
     Active Substance: SEMAGLUTIDE
     Indication: Glycosylated haemoglobin decreased
  3. SEMAGLUTIDE [Suspect]
     Active Substance: SEMAGLUTIDE
     Indication: Weight control
  4. SEMAGLUTIDE [Suspect]
     Active Substance: SEMAGLUTIDE
     Indication: Glycosylated haemoglobin decreased
  5. METFORMIN [Concomitant]
     Active Substance: METFORMIN HYDROCHLORIDE
     Indication: Glycosylated haemoglobin
     Dates: start: 2018

REACTIONS (4)
  - Oropharyngeal discomfort [Unknown]
  - Nausea [Unknown]
  - Dizziness [Unknown]
  - Counterfeit product administered [Unknown]
